FAERS Safety Report 4827243-7 (Version None)
Quarter: 2005Q4

REPORT INFORMATION
  Report Type: 
  Country: None (occurrence: None)
  Receive Date: 20051014
  Receipt Date: 20050617
  Transmission Date: 20060501
  Serious: No
  Sender: FDA-Public Use
  Company Number: 2005SP001473

PATIENT
  Age: 48 Year
  Sex: Male

DRUGS (6)
  1. LUNESTA [Suspect]
     Indication: INSOMNIA
     Dosage: 1 MG; HS; ORAL; SEE IMAGE
     Route: 048
     Dates: start: 20050601, end: 20050614
  2. LUNESTA [Suspect]
     Indication: INSOMNIA
     Dosage: 1 MG; HS; ORAL; SEE IMAGE
     Route: 048
     Dates: start: 20050615, end: 20050615
  3. RISPDERAL [Concomitant]
  4. ZOLOFT [Concomitant]
  5. SEROQUEL [Concomitant]
  6. STRATTERA [Concomitant]

REACTIONS (6)
  - ABNORMAL BEHAVIOUR [None]
  - AMNESIA [None]
  - ANGER [None]
  - DEPRESSION [None]
  - INSOMNIA [None]
  - THINKING ABNORMAL [None]
